FAERS Safety Report 21311164 (Version 1)
Quarter: 2022Q3

REPORT INFORMATION
  Report Type: Spontaneous
  Country: US (occurrence: None)
  Receive Date: 20220909
  Receipt Date: 20220909
  Transmission Date: 20221027
  Serious: No
  Sender: FDA-Public Use
  Company Number: US-ARIS GLOBAL-202201-0099

PATIENT
  Sex: Female

DRUGS (12)
  1. OXERVATE [Suspect]
     Active Substance: CENEGERMIN-BKBJ
     Indication: Neurotrophic keratopathy
     Route: 047
     Dates: start: 20220106
  2. GENTEAL TEARS [Concomitant]
     Active Substance: DEXTRAN 70\HYPROMELLOSE 2910 (4000 MPA.S)
     Dosage: 0.1%-0.3%
  3. LORAZEPAM [Concomitant]
     Active Substance: LORAZEPAM
  4. MYCOPHENOLATE MOFETIL [Concomitant]
     Active Substance: MYCOPHENOLATE MOFETIL
  5. OXYCODONE HYDROCHLORIDE [Concomitant]
     Active Substance: OXYCODONE HYDROCHLORIDE
  6. CEQUA [Concomitant]
     Active Substance: CYCLOSPORINE
  7. OMEPRAZOLE [Concomitant]
     Active Substance: OMEPRAZOLE
  8. MURO-128 [Concomitant]
  9. ONDANSETRON HCL [Concomitant]
     Active Substance: ONDANSETRON HYDROCHLORIDE
  10. GABAPENTIN [Concomitant]
     Active Substance: GABAPENTIN
  11. PREDNISONE [Concomitant]
     Active Substance: PREDNISONE
  12. ENVARSUS XR [Concomitant]
     Active Substance: TACROLIMUS
     Dosage: 24 HOURS

REACTIONS (3)
  - Eye pain [Unknown]
  - Eye irritation [Unknown]
  - Product dose omission issue [Unknown]
